FAERS Safety Report 7759992-5 (Version None)
Quarter: 2011Q3

REPORT INFORMATION
  Report Type: 
  Country: None (occurrence: None)
  Receive Date: 20110919
  Receipt Date: 20110912
  Transmission Date: 20111222
  Serious: Yes (Other)
  Sender: FDA-Public Use
  Company Number: SE-ELI_LILLY_AND_COMPANY-SE201109003338

PATIENT
  Age: 78 Year
  Sex: Female
  Weight: 63 kg

DRUGS (7)
  1. SIMVASTATIN [Concomitant]
     Dosage: UNK
     Dates: start: 20100610
  2. PRASUGREL HYDROCHLORIDE [Suspect]
     Indication: ACUTE CORONARY SYNDROME
     Dosage: 5 MG, UNK
     Route: 048
     Dates: start: 20110822
  3. CLOPIDOGREL [Suspect]
     Indication: ACUTE CORONARY SYNDROME
  4. OMEPRAZOLE [Concomitant]
     Dosage: UNK
     Dates: start: 20100610
  5. METOPROLOL TARTRATE [Concomitant]
     Dosage: UNK
     Dates: start: 20100610
  6. ASPIRIN [Concomitant]
  7. RAMIPRIL [Concomitant]
     Dosage: UNK
     Dates: start: 20100610

REACTIONS (1)
  - EOSINOPHILIA [None]
